FAERS Safety Report 8230174-6 (Version None)
Quarter: 2012Q1

REPORT INFORMATION
  Report Type: 
  Country: None (occurrence: None)
  Receive Date: 20120323
  Receipt Date: 20120319
  Transmission Date: 20120608
  Serious: No
  Sender: FDA-Public Use
  Company Number: US-PFIZER INC-2012071380

PATIENT
  Sex: Female
  Weight: 55.329 kg

DRUGS (1)
  1. TOVIAZ [Suspect]
     Indication: URINARY INCONTINENCE
     Dosage: 8 MG, DAILY
     Dates: start: 20110101

REACTIONS (2)
  - DRY MOUTH [None]
  - NASAL DRYNESS [None]
